FAERS Safety Report 18292833 (Version 4)
Quarter: 2020Q4

REPORT INFORMATION
  Report Type: Spontaneous
  Country: JP (occurrence: JP)
  Receive Date: 20200921
  Receipt Date: 20201102
  Transmission Date: 20210113
  Serious: Yes (Other)
  Sender: FDA-Public Use
  Company Number: JP-009507513-2009JPN001768J

PATIENT
  Age: 85 Year
  Sex: Female
  Weight: 38 kg

DRUGS (13)
  1. SAMSCA [Concomitant]
     Active Substance: TOLVAPTAN
     Dosage: 11.25 MILLIGRAM, QD(AFTER BREAKFAST)
     Route: 048
  2. SARPOGRELATE [Concomitant]
     Active Substance: SARPOGRELATE
     Dosage: 100 MILLIGRAM, BID(AFTER BREAKFAST AND DINNER)
     Route: 048
     Dates: start: 20200807
  3. SPIRONOLACTONE. [Concomitant]
     Active Substance: SPIRONOLACTONE
     Dosage: 12.5 MILLIGRAM, QD(AFTER BREAKFAST)
     Route: 048
  4. ENALAPRIL MALEATE. [Concomitant]
     Active Substance: ENALAPRIL MALEATE
     Dosage: 5 MILLIGRAM, QD(AFTER BREAKFAST)
     Route: 048
  5. TOARASET [Concomitant]
     Active Substance: ACETAMINOPHEN\TRAMADOL HYDROCHLORIDE
     Dosage: 1 DOSAGE FORM, BID(AFTER BREAKFAST AND DINNER)
     Route: 048
     Dates: start: 20200807
  6. FUROSEMIDE. [Concomitant]
     Active Substance: FUROSEMIDE
     Dosage: 10 MILLIGRAM, QD(AFTER BREAKFAST)
     Route: 048
  7. JUVELA N [Concomitant]
     Active Substance: TOCOPHERYL NICOTINATE, D-.ALPHA.
     Dosage: 200 MILLIGRAM, QD(AFTER BREAKFAST)
     Route: 048
  8. TARLIGE [Concomitant]
     Active Substance: MIROGABALIN BESYLATE
     Dosage: 5 MILLIGRAM, BID(AFTER BREAKFAST AND DINNER)
     Route: 048
     Dates: start: 20200807
  9. FEBURIC [Concomitant]
     Active Substance: FEBUXOSTAT
     Dosage: 10 MILLIGRAM, QD(AFTER BREAKFAST)
     Route: 048
  10. TAKECAB [Concomitant]
     Active Substance: VONOPRAZAN FUMARATE
     Dosage: 10 MILLIGRAM, QD(AFTER BREAKFAST)
     Route: 048
  11. CUBICIN [Suspect]
     Active Substance: DAPTOMYCIN
     Indication: OSTEOMYELITIS
     Dosage: 250 MILLIGRAM, QD
     Route: 041
     Dates: start: 20200814
  12. CLOPIDOGREL [Concomitant]
     Active Substance: CLOPIDOGREL BISULFATE
     Dosage: 75 MILLIGRAM, QD(AFTER BREAKFAST)
     Route: 048
  13. SUNRYTHM [Concomitant]
     Active Substance: PILSICAINIDE HYDROCHLORIDE
     Dosage: 25 MILLIGRAM, BID(AFTER BREAKFAST AND DINNER)
     Route: 048
     Dates: start: 20200807

REACTIONS (2)
  - Hypervitaminosis B [Unknown]
  - Neutropenia [Recovering/Resolving]

NARRATIVE: CASE EVENT DATE: 2020
